FAERS Safety Report 23361649 (Version 3)
Quarter: 2025Q4

REPORT INFORMATION
  Report Type: Spontaneous
  Country: US (occurrence: US)
  Receive Date: 20240103
  Receipt Date: 20251113
  Transmission Date: 20260117
  Serious: Yes (Other)
  Sender: ALIMERA
  Company Number: US-ALIMERA SCIENCES INC.-US-A16013-23-001166

PATIENT
  Age: 60 Year
  Sex: Female

DRUGS (1)
  1. YUTIQ [Suspect]
     Active Substance: FLUOCINOLONE ACETONIDE
     Indication: Uveitis
     Dosage: 0.18 MILLIGRAM, SINGLE-UNKNOWN EYE
     Route: 031

REACTIONS (2)
  - Intraocular pressure increased [Unknown]
  - Trabeculectomy [Recovered/Resolved]
